FAERS Safety Report 13545994 (Version 2)
Quarter: 2017Q2

REPORT INFORMATION
  Report Type: Spontaneous
  Country: JP (occurrence: JP)
  Receive Date: 20170515
  Receipt Date: 20170517
  Transmission Date: 20170830
  Serious: Yes (Other)
  Sender: FDA-Public Use
  Company Number: JP-SA-2017SA079514

PATIENT
  Age: 74 Year
  Sex: Male

DRUGS (1)
  1. JEVTANA [Suspect]
     Active Substance: CABAZITAXEL
     Indication: HORMONE-REFRACTORY PROSTATE CANCER
     Route: 051

REACTIONS (5)
  - Bone marrow failure [Unknown]
  - Neutrophil count decreased [Unknown]
  - Pneumonia [Unknown]
  - Hyponatraemia [Unknown]
  - White blood cell count decreased [Unknown]
